FAERS Safety Report 17064136 (Version 1)
Quarter: 2019Q4

REPORT INFORMATION
  Report Type: Spontaneous
  Country: US (occurrence: US)
  Receive Date: 20191023
  Receipt Date: 20191023
  Transmission Date: 20200122
  Serious: No
  Sender: FDA-Public Use
  Company Number: None

PATIENT
  Sex: Female

DRUGS (1)
  1. MENOPUR [Suspect]
     Active Substance: FOLLITROPIN\LUTEINIZING HORMONE
     Indication: INFERTILITY FEMALE
     Dosage: ?          OTHER STRENGTH:75 UNITS;OTHER DOSE:150-225 UNITS;?
     Route: 058
     Dates: start: 20190920

REACTIONS (2)
  - Pain [None]
  - Needle issue [None]
